FAERS Safety Report 4491394-X (Version None)
Quarter: 2004Q4

REPORT INFORMATION
  Report Type: 
  Country: None (occurrence: None)
  Receive Date: 20041103
  Receipt Date: 20040826
  Transmission Date: 20050328
  Serious: Yes (Hospitalization, Other)
  Sender: FDA-Public Use
  Company Number: US-ABBOTT-04P-163-0271761-00

PATIENT
  Sex: Female
  Weight: 80 kg

DRUGS (18)
  1. HUMIRA [Suspect]
     Indication: RHEUMATOID ARTHRITIS
     Route: 058
     Dates: start: 20040516, end: 20040826
  2. NAPROXEN [Concomitant]
     Indication: RHEUMATOID ARTHRITIS
     Dates: start: 19880508
  3. METHYLPREDNISOLONE [Concomitant]
     Indication: RHEUMATOID ARTHRITIS
     Dates: start: 20030701, end: 20040519
  4. CITALOPRAM HYDROBROMIDE [Concomitant]
     Indication: DEPRESSION
     Dates: start: 19990628
  5. AMITRIPTYLINE HYDROCHLORIDE [Concomitant]
     Indication: DEPRESSION
     Dates: start: 19990326
  6. ALENDRONATE SODIUM [Concomitant]
     Indication: OSTEOPOROSIS
     Dates: start: 20020201
  7. GLUCOSAMINE W/CHONDROITIN SULFATES [Concomitant]
     Indication: MEDICAL DIET
     Dosage: 1500 MG/1200 MG
     Dates: start: 20020501
  8. METHOTREXATE [Concomitant]
     Indication: RHEUMATOID ARTHRITIS
     Dates: start: 20020614
  9. FOLIC ACID [Concomitant]
     Indication: VITAMIN SUPPLEMENTATION
     Dates: start: 20020614
  10. VICODIN [Concomitant]
     Indication: RHEUMATOID ARTHRITIS
     Dates: start: 19940516
  11. FLUCONAZOLE [Concomitant]
     Indication: INFECTION PROPHYLAXIS
     Dates: start: 20040305, end: 20040307
  12. MULTI-VITAMINS [Concomitant]
     Indication: VITAMIN SUPPLEMENTATION
     Dates: start: 20040101
  13. TRIAMCINOLONE ACETONIDE [Concomitant]
     Indication: ARTHRALGIA
     Dates: start: 20040304, end: 20040304
  14. LIDOCAINE [Concomitant]
     Indication: ARTHRALGIA
     Dates: start: 20040304, end: 20040304
  15. METHYLPREDNISOLONE [Concomitant]
     Indication: ARTHRALGIA
     Dates: start: 20040520, end: 20040531
  16. METHYLPREDNISOLONE [Concomitant]
     Dates: start: 20040601
  17. GENTAMICIN SULFATE [Concomitant]
     Indication: CONJUNCTIVITIS
     Dates: start: 20040607, end: 20040612
  18. INFLUENZA VACCINE [Concomitant]
     Indication: INFLUENZA IMMUNISATION
     Dates: start: 19990101, end: 19990101

REACTIONS (4)
  - BLOOD PRESSURE INCREASED [None]
  - CEREBROVASCULAR ACCIDENT [None]
  - NAUSEA [None]
  - VERTEBROBASILAR INSUFFICIENCY [None]
